FAERS Safety Report 21546475 (Version 2)
Quarter: 2022Q4

REPORT INFORMATION
  Report Type: Spontaneous
  Country: PL (occurrence: PL)
  Receive Date: 20221103
  Receipt Date: 20221116
  Transmission Date: 20230113
  Serious: Yes (Other)
  Sender: FDA-Public Use
  Company Number: PL-AMGEN-POLSP2022183960

PATIENT
  Age: 1 Year
  Sex: Male

DRUGS (9)
  1. NPLATE [Suspect]
     Active Substance: ROMIPLOSTIM
     Indication: Thrombocytopenic purpura
     Dosage: 2.5 MICROGRAM/KILOGRAM, QWK
     Route: 065
     Dates: start: 20220131
  2. NPLATE [Suspect]
     Active Substance: ROMIPLOSTIM
     Dosage: 5 MICROGRAM/KILOGRAM, QWK
     Route: 065
     Dates: start: 20220208
  3. NPLATE [Suspect]
     Active Substance: ROMIPLOSTIM
     Dosage: 5 MICROGRAM/KILOGRAM, QWK
     Route: 065
     Dates: start: 20220215
  4. NPLATE [Suspect]
     Active Substance: ROMIPLOSTIM
     Dosage: 7.5 MICROGRAM/KILOGRAM, QWK
     Route: 065
     Dates: start: 20220222
  5. NPLATE [Suspect]
     Active Substance: ROMIPLOSTIM
     Dosage: 10 MICROGRAM/KILOGRAM, QWK
     Route: 065
     Dates: start: 20220301
  6. NPLATE [Suspect]
     Active Substance: ROMIPLOSTIM
     Dosage: 7.5 MICROGRAM/KILOGRAM
     Route: 065
     Dates: start: 20220308
  7. NPLATE [Suspect]
     Active Substance: ROMIPLOSTIM
     Dosage: 5 MICROGRAM/KILOGRAM, QWK
     Route: 065
     Dates: start: 20220322
  8. NPLATE [Suspect]
     Active Substance: ROMIPLOSTIM
     Dosage: 7.5 MICROGRAM/KILOGRAM
     Route: 065
     Dates: start: 20220329
  9. NPLATE [Suspect]
     Active Substance: ROMIPLOSTIM
     Dosage: 2.5 MICROGRAM/KILOGRAM
     Route: 065
     Dates: start: 20220419, end: 20220419

REACTIONS (1)
  - Serratia infection [Unknown]

NARRATIVE: CASE EVENT DATE: 20220214
